FAERS Safety Report 8286835-6 (Version None)
Quarter: 2012Q2

REPORT INFORMATION
  Report Type: 
  Country: None (occurrence: None)
  Receive Date: 20120416
  Receipt Date: 20120403
  Transmission Date: 20120825
  Serious: Yes (Other)
  Sender: FDA-Public Use
  Company Number: GB-ELI_LILLY_AND_COMPANY-GB201204000782

PATIENT
  Age: 40 Year
  Sex: Female
  Weight: 63 kg

DRUGS (5)
  1. LORAZEPAM [Concomitant]
  2. FLUOXETINE [Concomitant]
  3. QUETIAPINE FUMARATE [Concomitant]
  4. OLANZAPINE [Suspect]
     Dosage: 5 MG, UNK
     Route: 048
     Dates: start: 20120308, end: 20120322
  5. OLANZAPINE [Suspect]
     Indication: MAJOR DEPRESSION
     Dosage: UNK
     Dates: start: 20110401

REACTIONS (6)
  - GRAVITATIONAL OEDEMA [None]
  - ANAEMIA [None]
  - ARTHRALGIA [None]
  - JOINT SWELLING [None]
  - CALCIUM DEFICIENCY [None]
  - JOINT WARMTH [None]
